FAERS Safety Report 11375523 (Version 2)
Quarter: 2015Q4

REPORT INFORMATION
  Report Type: Spontaneous
  Country: BE (occurrence: BE)
  Receive Date: 20150813
  Receipt Date: 20151124
  Transmission Date: 20160304
  Serious: Yes (Hospitalization, Other)
  Sender: FDA-Public Use
  Company Number: BE-PFIZER INC-2015257903

PATIENT
  Age: 59 Year
  Sex: Male
  Weight: 80 kg

DRUGS (5)
  1. LORMETAZEPAM [Concomitant]
     Active Substance: LORMETAZEPAM
     Dosage: 1 MG, 1X/DAY IN THE EVENING
  2. NALOXONE/OXYCODONE [Concomitant]
     Dosage: 5 MG, 2X/DAY
  3. PREDNISOLON [Concomitant]
     Active Substance: PREDNISOLONE
     Dosage: 20 MG, DAILY
  4. LACTULOSE. [Concomitant]
     Active Substance: LACTULOSE
     Dosage: UNK, AS NEEDED
  5. SUTENT [Suspect]
     Active Substance: SUNITINIB MALATE
     Indication: RENAL CELL CARCINOMA STAGE III
     Dosage: 50 MG, CYCLIC, 4/2 WEEKS
     Route: 048
     Dates: start: 201111, end: 201302

REACTIONS (11)
  - Pleural effusion [Unknown]
  - Renal cell carcinoma stage III [Unknown]
  - Cough [Unknown]
  - Weight decreased [Unknown]
  - Fatigue [Unknown]
  - Decreased appetite [Unknown]
  - Dyspnoea [Unknown]
  - Chest pain [Unknown]
  - Hypercalcaemia [Recovered/Resolved]
  - Disease progression [Unknown]
  - Pleuritic pain [Unknown]

NARRATIVE: CASE EVENT DATE: 201302
